FAERS Safety Report 24444114 (Version 2)
Quarter: 2025Q3

REPORT INFORMATION
  Report Type: Spontaneous
  Country: US (occurrence: US)
  Receive Date: 20241016
  Receipt Date: 20250816
  Transmission Date: 20251021
  Serious: No
  Sender: ALEXION PHARMACEUTICALS
  Company Number: US-AstraZeneca-CH-00726973A

PATIENT
  Age: 47 Year
  Sex: Female
  Weight: 61.234 kg

DRUGS (5)
  1. SYMBICORT [Suspect]
     Active Substance: BUDESONIDE\FORMOTEROL FUMARATE DIHYDRATE
     Route: 065
  2. FASENRA [Suspect]
     Active Substance: BENRALIZUMAB
     Dosage: 30 MILLIGRAM, Q4W
     Dates: start: 202409
  3. SINGULAIR [Suspect]
     Active Substance: MONTELUKAST SODIUM
     Route: 065
  4. AMLODIPINE [Concomitant]
     Active Substance: AMLODIPINE BESYLATE
     Route: 065
  5. BYSTOLIC [Concomitant]
     Active Substance: NEBIVOLOL HYDROCHLORIDE
     Route: 065

REACTIONS (1)
  - Dizziness [Unknown]

NARRATIVE: CASE EVENT DATE: 20240901
